FAERS Safety Report 17898088 (Version 1)
Quarter: 2020Q2

REPORT INFORMATION
  Report Type: Report from Study
  Country: BR (occurrence: BR)
  Receive Date: 20200616
  Receipt Date: 20200616
  Transmission Date: 20200714
  Serious: Yes (Other)
  Sender: FDA-Public Use
  Company Number: BR-ROCHE-2615512

PATIENT
  Sex: Female

DRUGS (4)
  1. ZOLADEX [Concomitant]
     Active Substance: GOSERELIN ACETATE
  2. HERCEPTIN [Suspect]
     Active Substance: TRASTUZUMAB
     Indication: HER2 POSITIVE BREAST CANCER
     Route: 065
  3. NAVELBINE [Concomitant]
     Active Substance: VINORELBINE TARTRATE
     Route: 048
  4. PERJETA [Suspect]
     Active Substance: PERTUZUMAB
     Indication: HER2 POSITIVE BREAST CANCER
     Route: 065

REACTIONS (21)
  - Insomnia [Unknown]
  - Dehydration [Unknown]
  - Vomiting [Unknown]
  - Device related infection [Unknown]
  - Malaise [Unknown]
  - Anxiety [Unknown]
  - Weight decreased [Unknown]
  - Haemorrhage [Unknown]
  - Fatigue [Unknown]
  - Disturbance in attention [Unknown]
  - Diarrhoea [Unknown]
  - Alopecia [Unknown]
  - Vision blurred [Unknown]
  - Decreased appetite [Unknown]
  - Impaired healing [Unknown]
  - Discomfort [Unknown]
  - Patient-device incompatibility [Unknown]
  - Anaemia [Unknown]
  - Somnolence [Unknown]
  - Nausea [Unknown]
  - Contusion [Unknown]
